FAERS Safety Report 17399877 (Version 1)
Quarter: 2020Q1

REPORT INFORMATION
  Report Type: Spontaneous
  Country: DE (occurrence: DE)
  Receive Date: 20200211
  Receipt Date: 20200211
  Transmission Date: 20200409
  Serious: Yes (Other)
  Sender: FDA-Public Use
  Company Number: DE-SUN PHARMACEUTICAL INDUSTRIES LTD-2020R1-236178

PATIENT
  Age: 34 Year
  Sex: Female

DRUGS (1)
  1. ASPIRIN. [Suspect]
     Active Substance: ASPIRIN
     Indication: CEREBRAL VENOUS SINUS THROMBOSIS
     Dosage: UNK
     Route: 065

REACTIONS (4)
  - Coma [Recovering/Resolving]
  - Exposure during pregnancy [Unknown]
  - Live birth [Unknown]
  - Condition aggravated [Recovering/Resolving]
